FAERS Safety Report 10243145 (Version 2)
Quarter: 2014Q2

REPORT INFORMATION
  Report Type: Spontaneous
  Country: US (occurrence: None)
  Receive Date: 20140616
  Receipt Date: 20140619
  Transmission Date: 20141212
  Serious: Yes (Death, Other)
  Sender: FDA-Public Use
  Company Number: ADR-2014-01011

PATIENT
  Age: 43 Year
  Sex: Male

DRUGS (6)
  1. BACLOFEN INTRATHECAL [Suspect]
     Indication: MUSCLE SPASTICITY
     Dosage: 973.1MCG/DAY
  2. ORAL BACLOFEN [Suspect]
  3. LYRICA [Suspect]
  4. OXYCONTIN [Suspect]
  5. FENTANYL PATCH [Suspect]
  6. DIPHENHYDRAMINE [Suspect]

REACTIONS (1)
  - Muscle spasticity [None]
